FAERS Safety Report 6938716-5 (Version None)
Quarter: 2010Q3

REPORT INFORMATION
  Report Type: 
  Country: None (occurrence: None)
  Receive Date: 20100824
  Receipt Date: 20100811
  Transmission Date: 20110219
  Serious: Yes (Hospitalization)
  Sender: FDA-Public Use
  Company Number: PHHY2010US52859

PATIENT
  Sex: Female

DRUGS (1)
  1. SANDOSTATIN [Suspect]
     Dosage: 15 ?G/KG/D
     Route: 058

REACTIONS (4)
  - GASTROINTESTINAL OEDEMA [None]
  - GASTROINTESTINAL TRACT MUCOSAL DISCOLOURATION [None]
  - HAEMATOCHEZIA [None]
  - PANCREATECTOMY [None]
